FAERS Safety Report 9349127 (Version 2)
Quarter: 2013Q3

REPORT INFORMATION
  Report Type: Spontaneous
  Country: HU (occurrence: HU)
  Receive Date: 20130614
  Receipt Date: 20130712
  Transmission Date: 20140515
  Serious: Yes (Death)
  Sender: FDA-Public Use
  Company Number: HU-009507513-1306HUN005606

PATIENT
  Age: 56 Year
  Sex: Male

DRUGS (2)
  1. INTRONA [Suspect]
     Indication: MALIGNANT MELANOMA
     Dosage: 3X WEEKLY, 10ME/WEEK IN TOTAL
     Route: 058
     Dates: start: 201204
  2. ACETAMINOPHEN [Concomitant]

REACTIONS (2)
  - Completed suicide [Fatal]
  - Depression [Fatal]
